FAERS Safety Report 4422903-4 (Version None)
Quarter: 2004Q3

REPORT INFORMATION
  Report Type: 
  Country: None (occurrence: None)
  Receive Date: 20040811
  Receipt Date: 20040804
  Transmission Date: 20050211
  Serious: Yes (Hospitalization)
  Sender: FDA-Public Use
  Company Number: 200412944FR

PATIENT
  Age: 89 Year
  Sex: Male

DRUGS (4)
  1. TOPALGIC [Suspect]
     Route: 048
     Dates: start: 20040505, end: 20040524
  2. LOVENOX [Suspect]
     Route: 058
     Dates: start: 20040505, end: 20040524
  3. DAKTARIN [Suspect]
     Dosage: DOSE UNIT: UNITS
     Route: 002
     Dates: start: 20040601, end: 20040601
  4. AMOXICILLIN [Suspect]
     Route: 048
     Dates: start: 20040511, end: 20040526

REACTIONS (2)
  - DERMATITIS EXFOLIATIVE [None]
  - RASH ERYTHEMATOUS [None]
